FAERS Safety Report 6219729-8 (Version None)
Quarter: 2009Q2

REPORT INFORMATION
  Report Type: 
  Country: None (occurrence: None)
  Receive Date: 20090605
  Receipt Date: 20090520
  Transmission Date: 20091009
  Serious: Yes (Death, Hospitalization)
  Sender: FDA-Public Use
  Company Number: 8044592

PATIENT
  Age: 45 Year
  Sex: Male

DRUGS (16)
  1. KEPPRA [Suspect]
     Indication: CONVULSION
     Dosage: 1500 MG 2/D PO
     Route: 048
     Dates: start: 20090226, end: 20090330
  2. NEURONTIN [Concomitant]
  3. CARBAMAZEPINE [Concomitant]
  4. VITAMIN B DUO [Concomitant]
  5. ALDACTONE [Concomitant]
  6. TORSEMIDE [Concomitant]
  7. LACTULOSE [Concomitant]
  8. HEPA-MERZ [Concomitant]
  9. ACTRAPID /00646001/ [Concomitant]
  10. PROTOPHANE [Concomitant]
  11. CALCIUM EFFERVESCENT [Concomitant]
  12. KALINOR /00031402/ [Concomitant]
  13. SPIRONOLACTONE GNR [Concomitant]
  14. FOLSAN [Concomitant]
  15. KONAKION [Concomitant]
  16. PANTOZOL /01263202/ [Concomitant]

REACTIONS (3)
  - AGGRESSION [None]
  - HALLUCINATION [None]
  - PNEUMONIA ASPIRATION [None]
